FAERS Safety Report 16109924 (Version 1)
Quarter: 2019Q1

REPORT INFORMATION
  Report Type: Spontaneous
  Country: US (occurrence: US)
  Receive Date: 20190325
  Receipt Date: 20190325
  Transmission Date: 20190418
  Serious: No
  Sender: FDA-Public Use
  Company Number: US-AUROBINDO-AUR-APL-2018-060509

PATIENT
  Sex: Female

DRUGS (2)
  1. GABAPENTIN CAPSULES 100 MG [Suspect]
     Active Substance: GABAPENTIN
     Dosage: 4 DOSAGE FORM, DAILY (3 IN MORNING AND 1 IN EVENING)
     Route: 048
  2. GABAPENTIN CAPSULES 100 MG [Suspect]
     Active Substance: GABAPENTIN
     Indication: NERVOUS SYSTEM DISORDER PROPHYLAXIS
     Dosage: 6 DOSAGE FORM, DAILY (3 IN MORNING AND 3 IN EVENING)
     Route: 048

REACTIONS (3)
  - Feeling abnormal [Recovered/Resolved]
  - Abdominal distension [Recovered/Resolved]
  - Weight increased [Recovered/Resolved]
